FAERS Safety Report 20394668 (Version 4)
Quarter: 2022Q2

REPORT INFORMATION
  Report Type: Spontaneous
  Country: US (occurrence: US)
  Receive Date: 20220129
  Receipt Date: 20220507
  Transmission Date: 20220721
  Serious: No
  Sender: FDA-Public Use
  Company Number: US-TEVA-2022-US-2000611

PATIENT
  Age: 68 Year
  Sex: Female

DRUGS (3)
  1. LORAZEPAM [Suspect]
     Active Substance: LORAZEPAM
     Indication: Anxiety
     Dosage: 6 MILLIGRAM DAILY;
     Route: 065
     Dates: start: 20211231
  2. LORAZEPAM [Suspect]
     Active Substance: LORAZEPAM
     Indication: Sleep disorder
     Dosage: 3 MILLIGRAM DAILY;
     Route: 065
  3. LORAZEPAM [Suspect]
     Active Substance: LORAZEPAM
     Dosage: 4 MILLIGRAM DAILY;
     Route: 065

REACTIONS (12)
  - Pruritus [Not Recovered/Not Resolved]
  - Illness [Not Recovered/Not Resolved]
  - Headache [Not Recovered/Not Resolved]
  - Dyspnoea [Unknown]
  - Drug ineffective [Unknown]
  - Feeling abnormal [Unknown]
  - Withdrawal syndrome [Unknown]
  - Night sweats [Unknown]
  - Erythema [Not Recovered/Not Resolved]
  - Hypoaesthesia [Not Recovered/Not Resolved]
  - Swelling face [Not Recovered/Not Resolved]
  - Product formulation issue [Unknown]

NARRATIVE: CASE EVENT DATE: 20211231
